FAERS Safety Report 10036840 (Version 1)
Quarter: 2014Q1

REPORT INFORMATION
  Report Type: Spontaneous
  Country: CA (occurrence: CA)
  Receive Date: 20140326
  Receipt Date: 20140326
  Transmission Date: 20141002
  Serious: Yes (Death)
  Sender: FDA-Public Use
  Company Number: CA-AMGEN-CANSP2014020645

PATIENT
  Age: 41 Year
  Sex: Male
  Weight: 83 kg

DRUGS (1)
  1. ENBREL [Suspect]
     Indication: PRODUCT USED FOR UNKNOWN INDICATION
     Dosage: 60 MG, QWK
     Route: 058

REACTIONS (21)
  - Ascites [Fatal]
  - Autoimmune haemolytic anaemia [Fatal]
  - Disseminated intravascular coagulation [Fatal]
  - Encephalopathy [Fatal]
  - Granuloma [Fatal]
  - Hepatic enzyme increased [Fatal]
  - Liver disorder [Fatal]
  - Marrow hyperplasia [Fatal]
  - Pulseless electrical activity [Fatal]
  - Renal failure acute [Fatal]
  - Sideroblastic anaemia [Fatal]
  - Splenic embolism [Fatal]
  - Splenomegaly [Fatal]
  - Upper gastrointestinal haemorrhage [Fatal]
  - Vitamin B1 decreased [Fatal]
  - Liver function test abnormal [Fatal]
  - Bronchopneumonia [Fatal]
  - Sepsis [Fatal]
  - Viral infection [Fatal]
  - Mycobacterial infection [Fatal]
  - Thrombocytopenia [Fatal]
